FAERS Safety Report 4295380-4 (Version None)
Quarter: 2004Q1

REPORT INFORMATION
  Report Type: 
  Country: None (occurrence: None)
  Receive Date: 20040216
  Receipt Date: 20030703
  Transmission Date: 20041129
  Serious: Yes (Other)
  Sender: FDA-Public Use
  Company Number: US-GLAXOSMITHKLINE-A0415835A

PATIENT
  Sex: Female

DRUGS (3)
  1. LAMICTAL [Suspect]
     Indication: BIPOLAR DISORDER
     Dosage: 100MG PER DAY
     Route: 048
     Dates: start: 20030101, end: 20030601
  2. DEPAKOTE [Concomitant]
     Route: 065
  3. RESTORIL [Concomitant]
     Route: 065

REACTIONS (2)
  - ANAEMIA [None]
  - FATIGUE [None]
